FAERS Safety Report 7869877-1 (Version None)
Quarter: 2011Q4

REPORT INFORMATION
  Report Type: 
  Country: None (occurrence: None)
  Receive Date: 20111028
  Receipt Date: 20110111
  Transmission Date: 20120403
  Serious: No
  Sender: FDA-Public Use
  Company Number: US-AMGEN-USASP2011001686

PATIENT
  Age: 27 Year
  Sex: Female

DRUGS (1)
  1. ENBREL [Suspect]
     Indication: RHEUMATOID ARTHRITIS
     Dosage: 50 MG, QWK
     Dates: start: 20090701, end: 20101227

REACTIONS (5)
  - OROPHARYNGEAL PAIN [None]
  - CHEST DISCOMFORT [None]
  - NASAL CONGESTION [None]
  - FATIGUE [None]
  - SINUS HEADACHE [None]
